FAERS Safety Report 14849713 (Version 4)
Quarter: 2018Q2

REPORT INFORMATION
  Report Type: Spontaneous
  Country: CA (occurrence: CA)
  Receive Date: 20180504
  Receipt Date: 20180613
  Transmission Date: 20180711
  Serious: Yes (Other)
  Sender: FDA-Public Use
  Company Number: CA-PFIZER INC-2018185611

PATIENT
  Age: 62 Year
  Sex: Female

DRUGS (10)
  1. SIGNIFOR [Suspect]
     Active Substance: PASIREOTIDE
     Indication: PITUITARY-DEPENDENT CUSHING^S SYNDROME
     Dosage: 0.3 MG, BID
     Route: 030
     Dates: start: 20180308
  2. PANTOPRAZOLE [Suspect]
     Active Substance: PANTOPRAZOLE
     Dosage: UNK UNK, BID
     Route: 065
     Dates: start: 20180416
  3. IRBESARTAN HCT [Concomitant]
     Active Substance: HYDROCHLOROTHIAZIDE\IRBESARTAN
     Dosage: UNK
  4. CORTEF [Suspect]
     Active Substance: HYDROCORTISONE
     Dosage: UNK
     Route: 065
  5. CARBAMIDE [Concomitant]
     Active Substance: UREA
     Dosage: UNK
  6. VITAMIN D [Concomitant]
     Active Substance: CHOLECALCIFEROL
     Dosage: UNK
  7. SIGNIFOR [Suspect]
     Active Substance: PASIREOTIDE
     Dosage: 0.6 MG, BID
     Route: 030
     Dates: start: 201803, end: 20180416
  8. CALCIUM [Concomitant]
     Active Substance: CALCIUM
     Dosage: UNK
  9. IRON [Concomitant]
     Active Substance: IRON
     Dosage: UNK
  10. JANUMET [Concomitant]
     Active Substance: METFORMIN HYDROCHLORIDE\SITAGLIPTIN PHOSPHATE
     Dosage: UNK

REACTIONS (24)
  - Abdominal pain lower [Recovered/Resolved]
  - Frequent bowel movements [Unknown]
  - Dysphagia [Unknown]
  - Blood glucose abnormal [Unknown]
  - Dyspnoea [Unknown]
  - Peripheral swelling [Unknown]
  - Libido increased [Unknown]
  - Somnolence [Unknown]
  - Abdominal pain [Recovered/Resolved]
  - Dyspnoea exertional [Unknown]
  - Gait inability [Unknown]
  - Abdominal pain upper [Unknown]
  - Abnormal faeces [Recovered/Resolved]
  - Dizziness [Unknown]
  - Nausea [Unknown]
  - Hydrothorax [Recovered/Resolved]
  - Vomiting [Recovered/Resolved]
  - Pain [Unknown]
  - Weight increased [Unknown]
  - Fatigue [Unknown]
  - Furuncle [Unknown]
  - Injection site pain [Unknown]
  - Headache [Unknown]
  - Asthenia [Unknown]

NARRATIVE: CASE EVENT DATE: 201803
